FAERS Safety Report 7867422-8 (Version None)
Quarter: 2011Q4

REPORT INFORMATION
  Report Type: 
  Country: None (occurrence: None)
  Receive Date: 20111021
  Receipt Date: 20111010
  Transmission Date: 20120403
  Serious: Yes (Other)
  Sender: FDA-Public Use
  Company Number: DSA_47885_2011

PATIENT
  Age: 60 Year
  Sex: Male

DRUGS (8)
  1. BUPROPION HCL [Suspect]
     Indication: DEPRESSION
     Dosage: (DF) ; (DF)
  2. ALPRAZOLAM [Concomitant]
  3. CLOPIDOGREL [Concomitant]
  4. CLONAZEPAM [Concomitant]
  5. TEMISARTAN [Concomitant]
  6. CITALOPRAM HYDROBROMIDE [Concomitant]
  7. ASPIRIN [Concomitant]
  8. SIMVASTATIN [Concomitant]

REACTIONS (9)
  - ADRENAL INSUFFICIENCY [None]
  - CARCINOEMBRYONIC ANTIGEN INCREASED [None]
  - BLOOD CHLORIDE DECREASED [None]
  - HYPONATRAEMIA [None]
  - EJECTION FRACTION DECREASED [None]
  - BLOOD ALDOSTERONE INCREASED [None]
  - ANXIETY [None]
  - PO2 DECREASED [None]
  - INSOMNIA [None]
